FAERS Safety Report 13740513 (Version 1)
Quarter: 2017Q3

REPORT INFORMATION
  Report Type: Spontaneous
  Country: US (occurrence: US)
  Receive Date: 20170710
  Receipt Date: 20170710
  Transmission Date: 20171127
  Serious: Yes (Disabling)
  Sender: FDA-Public Use
  Company Number: None

PATIENT
  Age: 68 Year
  Sex: Female
  Weight: 75.6 kg

DRUGS (18)
  1. PROPANOLOL [Concomitant]
     Active Substance: PROPRANOLOL HYDROCHLORIDE
  2. NEURONTIN [Concomitant]
     Active Substance: GABAPENTIN
  3. LEVOTHROID [Concomitant]
     Active Substance: LEVOTHYROXINE SODIUM
  4. VITAMIN D [Concomitant]
     Active Substance: CHOLECALCIFEROL
  5. PROLIA [Suspect]
     Active Substance: DENOSUMAB
     Indication: OSTEOPENIA
     Dosage: 1 INJECTION(S); 6 MOS; SUBCUTANEOUS?
     Route: 058
  6. PROSOM [Concomitant]
     Active Substance: ESTAZOLAM
  7. LOVASTATIN. [Concomitant]
     Active Substance: LOVASTATIN
  8. DOMPERIDONE [Concomitant]
     Active Substance: DOMPERIDONE
  9. COLACE [Concomitant]
     Active Substance: DOCUSATE SODIUM
  10. XANAX [Concomitant]
     Active Substance: ALPRAZOLAM
  11. PHAZYME [Concomitant]
     Active Substance: DIMETHICONE 410
  12. OXYCODONE [Concomitant]
     Active Substance: OXYCODONE
  13. OXYCONTIN [Concomitant]
     Active Substance: OXYCODONE HYDROCHLORIDE
  14. IGG [Concomitant]
     Active Substance: HUMAN IMMUNOGLOBULIN G
  15. PAXIL [Concomitant]
     Active Substance: PAROXETINE HYDROCHLORIDE
  16. CLONAZAPAM [Concomitant]
     Active Substance: CLONAZEPAM
  17. FIORICET [Concomitant]
     Active Substance: ACETAMINOPHEN\BUTALBITAL\CAFFEINE
  18. AMERGE [Concomitant]
     Active Substance: NARATRIPTAN HYDROCHLORIDE

REACTIONS (15)
  - Insomnia [None]
  - Dysuria [None]
  - Decreased appetite [None]
  - Contraindicated drug prescribed [None]
  - Contraindicated product administered [None]
  - Cold sweat [None]
  - Urinary tract infection [None]
  - Asthenia [None]
  - Diarrhoea [None]
  - Gastrointestinal pain [None]
  - Weight decreased [None]
  - Hot flush [None]
  - Migraine [None]
  - Abdominal pain upper [None]
  - Product label issue [None]

NARRATIVE: CASE EVENT DATE: 20170120
